FAERS Safety Report 5572372-6 (Version None)
Quarter: 2007Q4

REPORT INFORMATION
  Report Type: 
  Country: None (occurrence: None)
  Receive Date: 20071219
  Receipt Date: 20071210
  Transmission Date: 20080405
  Serious: Yes (Hospitalization)
  Sender: FDA-Public Use
  Company Number: 2007-02451

PATIENT
  Age: 61 Year
  Sex: Female
  Weight: 58 kg

DRUGS (11)
  1. VELCADE [Suspect]
     Indication: MULTIPLE MYELOMA
     Dosage: 2.00  MG, INTRAVENOUS
     Route: 042
     Dates: start: 20070515, end: 20070621
  2. ANTIBIOTICS [Suspect]
     Indication: DRUG USE FOR UNKNOWN INDICATION
  3. PREDNISONE [Concomitant]
  4. SOLDEM [Concomitant]
  5. ZOLPIDEM TARTRATE [Concomitant]
  6. FAMOTIDINE [Concomitant]
  7. CATAPLASMATA [Concomitant]
  8. RINDERON-VG (GENTAMICIN SULFATE, BETAMETHASONE VALERATE) [Concomitant]
  9. REBAMIPIDE (REBAMIPIDE) [Concomitant]
  10. MUCOSTA (REBAMIPIDE) [Concomitant]
  11. CLOBETASOL PROPIONATE [Concomitant]

REACTIONS (12)
  - BACK PAIN [None]
  - C-REACTIVE PROTEIN INCREASED [None]
  - COUGH [None]
  - DIZZINESS [None]
  - DRUG ERUPTION [None]
  - GASTRITIS [None]
  - HYPERTENSION [None]
  - MALAISE [None]
  - NEUTROPHIL COUNT DECREASED [None]
  - PAROTITIS [None]
  - PYREXIA [None]
  - RASH [None]
